FAERS Safety Report 12280661 (Version 1)
Quarter: 2016Q2

REPORT INFORMATION
  Report Type: Spontaneous
  Country: US (occurrence: None)
  Receive Date: 20160418
  Receipt Date: 20160418
  Transmission Date: 20160815
  Serious: No
  Sender: FDA-Public Use
  Company Number: None

PATIENT
  Sex: Female

DRUGS (1)
  1. HUMIRA [Suspect]
     Active Substance: ADALIMUMAB
     Indication: CROHN^S DISEASE
     Dosage: 80 MG, 40MG  DAY 1  THEN, EVERY OTHER SC
     Route: 058
     Dates: start: 20150314

REACTIONS (2)
  - Eye pain [None]
  - Eye inflammation [None]
